FAERS Safety Report 17657462 (Version 2)
Quarter: 2020Q2

REPORT INFORMATION
  Report Type: Report from Study
  Country: CO (occurrence: CO)
  Receive Date: 20200410
  Receipt Date: 20200429
  Transmission Date: 20200713
  Serious: Yes (Life-Threatening, Hospitalization)
  Sender: FDA-Public Use
  Company Number: NVSC2020CO097144

PATIENT
  Sex: Male
  Weight: 21 kg

DRUGS (1)
  1. REVOLADE [Suspect]
     Active Substance: ELTROMBOPAG
     Indication: IMMUNE THROMBOCYTOPENIA
     Dosage: 25 MG, QD
     Route: 048
     Dates: start: 202001

REACTIONS (5)
  - Petechiae [Unknown]
  - Disease recurrence [Unknown]
  - Haemoptysis [Unknown]
  - Productive cough [Unknown]
  - Platelet count decreased [Unknown]
